FAERS Safety Report 9391823 (Version 2)
Quarter: 2013Q3

REPORT INFORMATION
  Report Type: Report from Study
  Country: CA (occurrence: CA)
  Receive Date: 20130709
  Receipt Date: 20130715
  Transmission Date: 20140515
  Serious: Yes (Other)
  Sender: FDA-Public Use
  Company Number: PHHY2013CA072678

PATIENT
  Sex: Male

DRUGS (1)
  1. CLOZARIL [Suspect]
     Dosage: UNK UKN, UNK
     Dates: start: 20130606, end: 20130703

REACTIONS (4)
  - Road traffic accident [Unknown]
  - Swollen tongue [Unknown]
  - Sedation [Unknown]
  - Somnolence [Unknown]
